FAERS Safety Report 11843981 (Version 1)
Quarter: 2015Q4

REPORT INFORMATION
  Report Type: Report from Study
  Country: IT (occurrence: IT)
  Receive Date: 20151217
  Receipt Date: 20151217
  Transmission Date: 20160305
  Serious: Yes (Hospitalization)
  Sender: FDA-Public Use
  Company Number: PHHO2015IT020738

PATIENT
  Age: 43 Year
  Sex: Male

DRUGS (12)
  1. DELTACORTENE [Concomitant]
     Active Substance: PREDNISONE
     Dosage: 7.5 MG, QD
     Route: 048
     Dates: start: 20151105
  2. RANITIDINE [Concomitant]
     Active Substance: RANITIDINE\RANITIDINE HYDROCHLORIDE
     Indication: PRODUCT USED FOR UNKNOWN INDICATION
     Dosage: 150 MG, QD
     Route: 048
  3. CARDIOASPIRIN [Concomitant]
     Active Substance: ASPIRIN
     Indication: PROPHYLAXIS
     Dosage: 100 MG, QD
     Route: 048
     Dates: start: 20140919, end: 201410
  4. BACTRIM [Concomitant]
     Active Substance: SULFAMETHOXAZOLE\TRIMETHOPRIM
     Indication: ANTIBIOTIC PROPHYLAXIS
     Dosage: 400 MG, QD
     Route: 048
     Dates: start: 20140702
  5. DELTACORTENE [Concomitant]
     Active Substance: PREDNISONE
     Indication: RENAL TRANSPLANT
     Dosage: 10 MG, UNK
     Route: 048
     Dates: start: 20140819, end: 201410
  6. ADVAGRAF [Concomitant]
     Active Substance: TACROLIMUS
     Indication: RENAL TRANSPLANT
     Dosage: 5 MG, QD
     Route: 048
  7. OMNIC [Concomitant]
     Active Substance: TAMSULOSIN HYDROCHLORIDE
     Indication: PROPHYLAXIS
     Dosage: 0.4 MG, QD
     Route: 048
     Dates: start: 20140701
  8. MYFORTIC [Suspect]
     Active Substance: MYCOPHENOLATE SODIUM
     Indication: RENAL TRANSPLANT
     Dosage: 700 MG, BID
     Route: 048
     Dates: start: 20140919, end: 201410
  9. CERTICAN [Suspect]
     Active Substance: EVEROLIMUS
     Indication: RENAL TRANSPLANT
     Dosage: 1 MG, BID
     Route: 048
     Dates: start: 20140911
  10. NEORAL [Suspect]
     Active Substance: CYCLOSPORINE
     Indication: RENAL TRANSPLANT
     Dosage: 60 MG, BID
     Route: 048
     Dates: start: 20140904, end: 201410
  11. NORVASC [Concomitant]
     Active Substance: AMLODIPINE BESYLATE
     Indication: HYPERTENSION
     Dosage: 10 MG, BID
     Route: 048
     Dates: start: 2007
  12. DELTACORTENE [Concomitant]
     Active Substance: PREDNISONE
     Dosage: 5 MG, QD
     Route: 048
     Dates: start: 20141119

REACTIONS (1)
  - Liver disorder [Recovered/Resolved]

NARRATIVE: CASE EVENT DATE: 201408
